FAERS Safety Report 16625423 (Version 4)
Quarter: 2019Q4

REPORT INFORMATION
  Report Type: Spontaneous
  Country: US (occurrence: US)
  Receive Date: 20190724
  Receipt Date: 20191029
  Transmission Date: 20200122
  Serious: Yes (Hospitalization)
  Sender: FDA-Public Use
  Company Number: US-PFIZER INC-2019313401

PATIENT
  Age: 69 Year
  Sex: Female
  Weight: 113.38 kg

DRUGS (16)
  1. LISINOPRIL. [Concomitant]
     Active Substance: LISINOPRIL
     Dosage: 5 MG, DAILY [5 MG QD (EVERY DAY)]
  2. ZANTAC [Concomitant]
     Active Substance: RANITIDINE HYDROCHLORIDE
     Dosage: 150 UNK, 1X/DAY [150 QHS (EVERY NIGHT AT BEDTIME)]
  3. VALTREX [Concomitant]
     Active Substance: VALACYCLOVIR HYDROCHLORIDE
     Dosage: 500 MG, DAILY [500 MG QD (EVERY DAY)]
  4. HUMALOG [Concomitant]
     Active Substance: INSULIN LISPRO
     Dosage: UNK
  5. FISH OIL [Concomitant]
     Active Substance: FISH OIL
     Dosage: 938 MG, DAILY [938 MG QD (EVERY DAY)]
  6. DEXILANT [Concomitant]
     Active Substance: DEXLANSOPRAZOLE
     Indication: ABDOMINAL PAIN UPPER
     Dosage: 60 MG, 1X/DAY (60 MG HS )
  7. FENOFIBRATE. [Concomitant]
     Active Substance: FENOFIBRATE
     Dosage: 160 MG, DAILY [160 MG QD (EVERY DAY)]
  8. DETROL LA [Concomitant]
     Active Substance: TOLTERODINE TARTRATE
     Dosage: 4 MG, DAILY [DETROL LA 4 MG QD (EVERY DAY)]
  9. METFORMIN [Concomitant]
     Active Substance: METFORMIN HYDROCHLORIDE
     Dosage: 1000 MG, 2X/DAY (BID (TWICE A DAY))
  10. ZOLOFT [Concomitant]
     Active Substance: SERTRALINE HYDROCHLORIDE
     Dosage: 50 MG, DAILY [ 50 MG QD (EVERY DAY)]
  11. PLETAL [Concomitant]
     Active Substance: CILOSTAZOL
     Dosage: 100 MG, 2X/DAY [100 MG (BID TWICE A DAY)]
  12. KETOCONAZOLE. [Concomitant]
     Active Substance: KETOCONAZOLE
     Dosage: UNK
  13. LYRICA [Suspect]
     Active Substance: PREGABALIN
     Indication: NEUROPATHY PERIPHERAL
     Dosage: 100 MG, 2X/DAY[100 MG BID (TWICE A DAY)]
  14. SOMA [Concomitant]
     Active Substance: CARISOPRODOL
     Dosage: UNK, AS NEEDED[350 BID (TWICE A DAY) PRN (AS NEEDED)]
  15. BYSTOLIC [Concomitant]
     Active Substance: NEBIVOLOL HYDROCHLORIDE
     Dosage: 5 MG, DAILY (5 MG QD)
  16. LIDODERM [Concomitant]
     Active Substance: LIDOCAINE
     Dosage: UNK [PATCH 5% IN Q 12 (DEGREE)]

REACTIONS (1)
  - Limb discomfort [Not Recovered/Not Resolved]
